FAERS Safety Report 20111466 (Version 1)
Quarter: 2021Q4

REPORT INFORMATION
  Report Type: Other
  Country: JP (occurrence: None)
  Receive Date: 20211125
  Receipt Date: 20211125
  Transmission Date: 20220303
  Serious: Yes (Other)
  Sender: FDA-Public Use
  Company Number: JP-ROCHE-2962404

PATIENT

DRUGS (2)
  1. TRASTUZUMAB [Suspect]
     Active Substance: TRASTUZUMAB
     Indication: Colorectal cancer metastatic
     Dosage: 8 MG KG-1 LOADING DOSE, FOLLOWED BY 6 MG KG-1)
     Route: 041
  2. PERTUZUMAB [Suspect]
     Active Substance: PERTUZUMAB
     Indication: Colorectal cancer metastatic
     Dosage: 840 MG LOADING DOSE, FOLLOWED BY 420 MG
     Route: 042

REACTIONS (1)
  - Gamma-glutamyltransferase increased [Unknown]
